FAERS Safety Report 7459564-6 (Version None)
Quarter: 2011Q2

REPORT INFORMATION
  Report Type: 
  Country: None (occurrence: None)
  Receive Date: 20110504
  Receipt Date: 20110504
  Transmission Date: 20111010
  Serious: Yes (Hospitalization)
  Sender: FDA-Public Use
  Company Number: None

PATIENT
  Sex: Female
  Weight: 128.82 kg

DRUGS (2)
  1. HERCEPTIN [Suspect]
     Dosage: 252 MG
     Dates: end: 20100625
  2. TAXOL [Suspect]
     Dosage: 190 MG
     Dates: end: 20100625

REACTIONS (9)
  - PLEURAL EFFUSION [None]
  - ANAEMIA [None]
  - DYSPNOEA [None]
  - MITRAL VALVE INCOMPETENCE [None]
  - OEDEMA PERIPHERAL [None]
  - CHEST DISCOMFORT [None]
  - LEFT VENTRICULAR HYPERTROPHY [None]
  - TRICUSPID VALVE INCOMPETENCE [None]
  - PERICARDIAL EFFUSION [None]
